FAERS Safety Report 6335389-X (Version None)
Quarter: 2009Q3

REPORT INFORMATION
  Report Type: 
  Country: None (occurrence: None)
  Receive Date: 20090831
  Receipt Date: 20090817
  Transmission Date: 20100115
  Serious: Yes (Hospitalization)
  Sender: FDA-Public Use
  Company Number: JP-MYLANLABS-2009S1014560

PATIENT
  Age: 78 Year
  Sex: Male
  Weight: 47 kg

DRUGS (1)
  1. AZITHROMYCIN [Suspect]
     Indication: UPPER RESPIRATORY TRACT INFECTION
     Dates: start: 20061001

REACTIONS (1)
  - PULMONARY ALVEOLAR HAEMORRHAGE [None]
